FAERS Safety Report 8434369 (Version 2)
Quarter: 2012Q4

REPORT INFORMATION
  Report Type: 
  Country: US (occurrence: US)
  Receive Date: 20120301
  Receipt Date: 20121126
  Transmission Date: 20130627
  Serious: Yes (Hospitalization, Other)
  Sender: FDA-Public Use
  Company Number: US-SANOFI-AVENTIS-2012SA012080

PATIENT
  Age: 71 Year
  Sex: Female

DRUGS (3)
  1. LANTUS [Suspect]
     Indication: DIABETES
     Dosage: Dose:35 unit(s)
     Route: 058
     Dates: start: 2002
  2. LANTUS [Suspect]
     Indication: DIABETES
     Dosage: Dose:35 unit(s)
     Route: 058
     Dates: start: 2002
  3. HUMALOG [Concomitant]

REACTIONS (8)
  - Bladder cancer [Recovered/Resolved]
  - Leg amputation [Unknown]
  - Osteomyelitis [Unknown]
  - General physical health deterioration [Unknown]
  - Hypoglycaemia [Recovered/Resolved]
  - Product quality issue [Unknown]
  - Hyperhidrosis [Recovered/Resolved]
  - Heart rate increased [Recovered/Resolved]
